FAERS Safety Report 6903497-8 (Version None)
Quarter: 2010Q3

REPORT INFORMATION
  Report Type: 
  Country: None (occurrence: None)
  Receive Date: 20100803
  Receipt Date: 20081020
  Transmission Date: 20110219
  Serious: No
  Sender: FDA-Public Use
  Company Number: US-PFIZER INC-2008088634

PATIENT
  Sex: Female
  Weight: 90.909 kg

DRUGS (4)
  1. LYRICA [Suspect]
     Indication: FIBROMYALGIA
     Dates: start: 20081001, end: 20081013
  2. LYRICA [Suspect]
     Indication: NERVE INJURY
  3. VALSARTAN [Concomitant]
     Indication: HYPERTENSION
  4. PRILOSEC [Concomitant]

REACTIONS (6)
  - COGNITIVE DISORDER [None]
  - FEELING ABNORMAL [None]
  - ILL-DEFINED DISORDER [None]
  - RASH [None]
  - SEDATION [None]
  - URTICARIA [None]
